FAERS Safety Report 25518845 (Version 1)
Quarter: 2025Q3

REPORT INFORMATION
  Report Type: Spontaneous
  Country: JP (occurrence: JP)
  Receive Date: 20250704
  Receipt Date: 20250704
  Transmission Date: 20251021
  Serious: Yes (Hospitalization, Other)
  Sender: MERCK SHARP & DOHME LLC
  Company Number: JP-009507513-2302398

PATIENT
  Age: 82 Year
  Sex: Male

DRUGS (3)
  1. KEYTRUDA [Suspect]
     Active Substance: PEMBROLIZUMAB
     Indication: Oesophageal squamous cell carcinoma
     Route: 065
  2. FLUOROURACIL [Concomitant]
     Active Substance: FLUOROURACIL
     Indication: Oesophageal squamous cell carcinoma
  3. CISPLATIN [Concomitant]
     Active Substance: CISPLATIN
     Indication: Oesophageal squamous cell carcinoma

REACTIONS (3)
  - Oesophageal stenosis [Recovering/Resolving]
  - Oesophagitis [Recovering/Resolving]
  - Scar [Unknown]
